FAERS Safety Report 24928439 (Version 1)
Quarter: 2025Q1

REPORT INFORMATION
  Report Type: Spontaneous
  Country: US (occurrence: None)
  Receive Date: 20250204
  Receipt Date: 20250204
  Transmission Date: 20250409
  Serious: Yes (unspecified)
  Sender: FDA-CTU
  Company Number: None

PATIENT
  Age: 40 Year
  Weight: 99.9 kg

DRUGS (1)
  1. SUBLOCADE [Suspect]
     Active Substance: BUPRENORPHINE
     Indication: Drug use disorder
     Route: 058
     Dates: start: 20240214

REACTIONS (3)
  - Injection site pruritus [None]
  - Injection site erythema [None]
  - Skin ulcer [None]

NARRATIVE: CASE EVENT DATE: 20241212
